FAERS Safety Report 9017240 (Version 1)
Quarter: 2013Q1

REPORT INFORMATION
  Report Type: Spontaneous
  Country: US (occurrence: US)
  Receive Date: 20130117
  Receipt Date: 20130117
  Transmission Date: 20140127
  Serious: No
  Sender: FDA-Public Use
  Company Number: US-BAYER-2013-005993

PATIENT
  Sex: Female

DRUGS (2)
  1. NEXAVAR [Suspect]
     Indication: ANAPLASTIC THYROID CANCER
     Dosage: DAILY DOSE 800 MG(4 PILLS DAILY)
     Dates: start: 201205
  2. PACLITAXEL [Concomitant]
     Dosage: UNK UNK, Q3WK

REACTIONS (2)
  - Off label use [None]
  - Adverse drug reaction [None]
